FAERS Safety Report 5937830-0 (Version None)
Quarter: 2008Q4

REPORT INFORMATION
  Report Type: 
  Country: None (occurrence: None)
  Receive Date: 20081031
  Receipt Date: 20081020
  Transmission Date: 20090506
  Serious: Yes (Other)
  Sender: FDA-Public Use
  Company Number: AU-JNJCH-2008053103

PATIENT
  Age: 81 Year
  Sex: Female

DRUGS (1)
  1. ASPIRIN [Suspect]
     Indication: PROPHYLAXIS
     Dosage: TEXT:UNSPECIFED ONCE DAILY
     Route: 048

REACTIONS (1)
  - GASTRIC ULCER HAEMORRHAGE [None]
